FAERS Safety Report 13272801 (Version 4)
Quarter: 2017Q3

REPORT INFORMATION
  Report Type: Other
  Country: US (occurrence: US)
  Receive Date: 20170227
  Receipt Date: 20170801
  Transmission Date: 20171127
  Serious: Yes (Hospitalization, Other)
  Sender: FDA-Public Use
  Company Number: US-ACORDA-ACO_134366_2017

PATIENT
  Age: 55 Year
  Sex: Male
  Weight: 68.48 kg

DRUGS (8)
  1. VITAMIN D3 [Concomitant]
     Active Substance: CHOLECALCIFEROL
     Indication: PRODUCT USED FOR UNKNOWN INDICATION
     Dosage: 1000 IU, QD
     Route: 048
  2. AMPYRA [Suspect]
     Active Substance: DALFAMPRIDINE
     Indication: MULTIPLE SCLEROSIS
     Dosage: 10 MG, BID
     Route: 048
  3. AMLODIPINE BENAZEPRIL [Concomitant]
     Active Substance: AMLODIPINE BESYLATE\BENAZEPRIL HYDROCHLORIDE
     Indication: PRODUCT USED FOR UNKNOWN INDICATION
     Dosage: 5 MG, QD
     Route: 048
  4. ESCITALOPRAM OXALATE. [Concomitant]
     Active Substance: ESCITALOPRAM OXALATE
     Indication: PRODUCT USED FOR UNKNOWN INDICATION
     Dosage: 20 MG, QD
     Route: 048
  5. BACLOFEN. [Concomitant]
     Active Substance: BACLOFEN
     Indication: PRODUCT USED FOR UNKNOWN INDICATION
     Dosage: 10 MG TAB/, 0.5 QD
     Route: 048
  6. CELEXA [Concomitant]
     Active Substance: CITALOPRAM HYDROBROMIDE
     Indication: PRODUCT USED FOR UNKNOWN INDICATION
     Dosage: 20 MG, QD
     Route: 048
  7. TYSABRI [Suspect]
     Active Substance: NATALIZUMAB
     Indication: MULTIPLE SCLEROSIS
     Dosage: 300 MG, MONTHLY
     Route: 042
     Dates: start: 20161020, end: 201701
  8. VITAMIN B12 [Concomitant]
     Active Substance: CYANOCOBALAMIN
     Indication: PRODUCT USED FOR UNKNOWN INDICATION
     Dosage: 1000 MG, QD

REACTIONS (8)
  - Living in residential institution [Not Recovered/Not Resolved]
  - Secondary progressive multiple sclerosis [Not Recovered/Not Resolved]
  - Treatment noncompliance [Unknown]
  - JC virus test positive [Unknown]
  - Progressive multifocal leukoencephalopathy [Unknown]
  - Fall [Unknown]
  - Major depression [Recovering/Resolving]
  - Neuromyelitis optica spectrum disorder [Unknown]

NARRATIVE: CASE EVENT DATE: 201407
